FAERS Safety Report 11850701 (Version 1)
Quarter: 2015Q4

REPORT INFORMATION
  Report Type: Spontaneous
  Country: US (occurrence: US)
  Receive Date: 20151218
  Receipt Date: 20151218
  Transmission Date: 20160305
  Serious: No
  Sender: FDA-Public Use
  Company Number: US-JNJFOC-20141215896

PATIENT
  Age: 64 Year
  Sex: Female
  Weight: 65.77 kg

DRUGS (8)
  1. WOMENS ROGAINE EXTRA STRENGTH [Suspect]
     Active Substance: MINOXIDIL
     Route: 061
  2. BIOTIN [Concomitant]
     Active Substance: BIOTIN
     Route: 065
  3. THERAPEUTIC DRUG [Concomitant]
     Indication: EYE INFECTION
     Route: 065
  4. ALL THERAPEUTIC PRODUCTS [Concomitant]
     Indication: HEART RATE DECREASED
     Route: 065
  5. WOMENS ROGAINE EXTRA STRENGTH [Suspect]
     Active Substance: MINOXIDIL
     Indication: ALOPECIA
     Dosage: 1/2 CAPFUL
     Route: 061
     Dates: end: 20141218
  6. VITAMIN D [Concomitant]
     Active Substance: CHOLECALCIFEROL
     Indication: BLOOD CALCIUM
     Route: 065
  7. VIVISCAL HAIR SUPPLEMENT [Concomitant]
     Route: 065
  8. BABY ASPIRIN [Concomitant]
     Active Substance: ASPIRIN
     Indication: CARDIAC DISORDER
     Route: 065

REACTIONS (1)
  - Headache [Recovered/Resolved]
